FAERS Safety Report 24600955 (Version 1)
Quarter: 2024Q4

REPORT INFORMATION
  Report Type: Spontaneous
  Country: AT (occurrence: AT)
  Receive Date: 20241110
  Receipt Date: 20241110
  Transmission Date: 20250115
  Serious: Yes (Other)
  Sender: ABBVIE
  Company Number: AT-ABBVIE-5993544

PATIENT
  Age: 63 Year
  Sex: Female

DRUGS (1)
  1. HUMIRA [Suspect]
     Active Substance: ADALIMUMAB
     Indication: Crohn^s disease
     Dosage: FORM STRENGTH: 40, FORM STRENGTH UNITS: MILLIGRAM.
     Route: 058
     Dates: start: 2014

REACTIONS (4)
  - Cutaneous lupus erythematosus [Not Recovered/Not Resolved]
  - Photosensitivity reaction [Unknown]
  - Photophobia [Unknown]
  - Rash macular [Unknown]

NARRATIVE: CASE EVENT DATE: 20230101
